FAERS Safety Report 5414194-2 (Version None)
Quarter: 2007Q3

REPORT INFORMATION
  Report Type: 
  Country: None (occurrence: None)
  Receive Date: 20070814
  Receipt Date: 20070802
  Transmission Date: 20080115
  Serious: Yes (Other)
  Sender: FDA-Public Use
  Company Number: US-PFIZER INC-2007065123

PATIENT
  Sex: Male
  Weight: 136.36 kg

DRUGS (10)
  1. LIPITOR [Suspect]
     Indication: BLOOD CHOLESTEROL INCREASED
  2. GLUCOPHAGE [Concomitant]
  3. GLUCOTROL [Concomitant]
  4. ACCUPRIL [Concomitant]
  5. LASIX [Concomitant]
  6. MUSCLE RELAXANTS [Concomitant]
  7. ANALGESICS [Concomitant]
  8. VITAMIN E [Concomitant]
  9. ASCORBIC ACID [Concomitant]
  10. FISH OIL [Concomitant]

REACTIONS (7)
  - ACCIDENT AT WORK [None]
  - BONE OPERATION [None]
  - HYPOAESTHESIA [None]
  - INTERVERTEBRAL DISC OPERATION [None]
  - MUSCLE SPASMS [None]
  - MUSCLE STRAIN [None]
  - WEIGHT DECREASED [None]
